FAERS Safety Report 9245385 (Version 2)
Quarter: 2013Q2

REPORT INFORMATION
  Report Type: Spontaneous
  Country: US (occurrence: US)
  Receive Date: 20130422
  Receipt Date: 20130617
  Transmission Date: 20140414
  Serious: Yes (Life-Threatening, Hospitalization, Other)
  Sender: FDA-Public Use
  Company Number: US-JNJFOC-20130406180

PATIENT
  Age: 18 Year
  Sex: Female
  Weight: 70.1 kg

DRUGS (14)
  1. DIPHENHYDRAMINE [Suspect]
     Indication: PRODUCT USED FOR UNKNOWN INDICATION
     Route: 065
  2. VELCADE [Suspect]
     Indication: ACUTE MYELOID LEUKAEMIA
     Dosage: CYCLIC
     Route: 042
     Dates: start: 20121010, end: 20130110
  3. MITOXANTRONE HYDROCHLORIDE [Suspect]
     Indication: ACUTE MYELOID LEUKAEMIA
     Dosage: CYCLIC
     Route: 042
     Dates: start: 20121010, end: 20130108
  4. CYTARABINE [Suspect]
     Indication: ACUTE MYELOID LEUKAEMIA
     Dosage: CYCLIC
     Route: 037
     Dates: start: 20121001, end: 20130103
  5. CYTARABINE [Suspect]
     Indication: ACUTE MYELOID LEUKAEMIA
     Dosage: CYCLIC
     Route: 037
     Dates: start: 20121001, end: 20130103
  6. CYTARABINE [Suspect]
     Indication: ACUTE MYELOID LEUKAEMIA
     Dosage: CYCLIC
     Route: 037
     Dates: start: 20121001, end: 20130103
  7. DAUNORUBICIN HYDROCHLORIDE [Suspect]
     Indication: ACUTE MYELOID LEUKAEMIA
     Dosage: CYCLIC
     Route: 042
     Dates: start: 20121001, end: 20121005
  8. ETOPOSIDE [Suspect]
     Indication: ACUTE MYELOID LEUKAEMIA
     Dosage: CYCLIC
     Route: 042
     Dates: start: 20121001, end: 20121109
  9. ETOPOSIDE [Suspect]
     Indication: ACUTE MYELOID LEUKAEMIA
     Dosage: CYCLIC
     Route: 042
     Dates: start: 20121001, end: 20121109
  10. LORAZEPAM [Suspect]
     Indication: PRODUCT USED FOR UNKNOWN INDICATION
     Dosage: CYCLIC
     Route: 065
  11. ZOFRAN [Suspect]
     Indication: PRODUCT USED FOR UNKNOWN INDICATION
     Dosage: CYCLIC
     Route: 065
  12. HYDROXYZINE [Suspect]
     Indication: PRODUCT USED FOR UNKNOWN INDICATION
     Dosage: CYCLIC
     Route: 065
  13. PROCHLORPERAZINE [Suspect]
     Indication: PRODUCT USED FOR UNKNOWN INDICATION
     Dosage: CYCLIC
     Route: 065
  14. SCOPOLAMINE [Suspect]
     Indication: PRODUCT USED FOR UNKNOWN INDICATION
     Dosage: CYCLIC
     Route: 065

REACTIONS (15)
  - Posterior reversible encephalopathy syndrome [Recovered/Resolved]
  - Diarrhoea [Unknown]
  - Histiocytosis haematophagic [Recovering/Resolving]
  - Hypoxia [Recovered/Resolved]
  - Streptococcal sepsis [Unknown]
  - Systemic inflammatory response syndrome [Unknown]
  - Renal failure [Unknown]
  - Pancytopenia [Recovering/Resolving]
  - Renal failure acute [Recovered/Resolved]
  - Anticholinergic syndrome [Recovered/Resolved]
  - Menorrhagia [Recovered/Resolved]
  - Respiratory distress [Recovered/Resolved]
  - Asthenia [Unknown]
  - Rash [Unknown]
  - Cough [Unknown]
